FAERS Safety Report 17749951 (Version 1)
Quarter: 2020Q2

REPORT INFORMATION
  Report Type: Spontaneous
  Country: US (occurrence: US)
  Receive Date: 20200505
  Receipt Date: 20200505
  Transmission Date: 20200714
  Serious: Yes (Hospitalization)
  Sender: FDA-Public Use
  Company Number: None

PATIENT
  Age: 62 Year
  Sex: Male

DRUGS (1)
  1. HYDROXYUREA 500MG CAP [Suspect]
     Active Substance: HYDROXYUREA
     Dosage: ?          OTHER FREQUENCY:AS DIRECTED ;?
     Route: 048
     Dates: start: 20190927

REACTIONS (1)
  - Peripheral artery occlusion [None]

NARRATIVE: CASE EVENT DATE: 20200505
